FAERS Safety Report 10876616 (Version 1)
Quarter: 2015Q1

REPORT INFORMATION
  Report Type: Spontaneous
  Country: TR (occurrence: TR)
  Receive Date: 20150301
  Receipt Date: 20150301
  Transmission Date: 20150721
  Serious: Yes (Other)
  Sender: FDA-Public Use
  Company Number: ALCN2015TR001293

PATIENT
  Age: 73 Year
  Sex: Female

DRUGS (3)
  1. GENTAMICIN. [Suspect]
     Active Substance: GENTAMICIN
     Indication: KERATITIS
     Dosage: ALTERNATING HOURLY WITH MOXIFLOXACIN
     Route: 047
  2. CYCLOPENTOLATE HCL [Suspect]
     Active Substance: CYCLOPENTOLATE HYDROCHLORIDE
     Indication: KERATITIS
     Dosage: UNK
     Route: 047
  3. MOXIFLOXACIN HCL [Suspect]
     Active Substance: MOXIFLOXACIN
     Indication: KERATITIS
     Dosage: ALTERNATING HOURLY WITH GENTAMICIN
     Route: 047

REACTIONS (11)
  - Conjunctival hyperaemia [Recovered/Resolved with Sequelae]
  - Hypopyon [Recovered/Resolved with Sequelae]
  - Visual acuity reduced [Recovered/Resolved with Sequelae]
  - Ulcerative keratitis [Recovered/Resolved with Sequelae]
  - Off label use [Unknown]
  - Corneal abscess [Recovered/Resolved with Sequelae]
  - Erythema of eyelid [Unknown]
  - Keratitis [Recovered/Resolved with Sequelae]
  - Endophthalmitis [Recovered/Resolved with Sequelae]
  - Disease progression [Recovered/Resolved with Sequelae]
  - Eyelid oedema [Unknown]
